FAERS Safety Report 7724329-4 (Version None)
Quarter: 2011Q3

REPORT INFORMATION
  Report Type: 
  Country: None (occurrence: None)
  Receive Date: 20110901
  Receipt Date: 20110826
  Transmission Date: 20111222
  Serious: Yes (Death, Other)
  Sender: FDA-Public Use
  Company Number: JP-CEPHALON-2011002866

PATIENT
  Age: 67 Year
  Sex: Male

DRUGS (3)
  1. FILGRASTIM [Concomitant]
     Dates: start: 20110401, end: 20110401
  2. TREANDA [Suspect]
     Indication: B-CELL LYMPHOMA
     Route: 042
     Dates: start: 20110406, end: 20110407
  3. TREANDA [Suspect]
     Route: 042
     Dates: start: 20110427, end: 20110428

REACTIONS (2)
  - APLASTIC ANAEMIA [None]
  - B-CELL LYMPHOMA [None]
